FAERS Safety Report 4725903-X (Version None)
Quarter: 2005Q3

REPORT INFORMATION
  Report Type: 
  Country: None (occurrence: None)
  Receive Date: 20050726
  Receipt Date: 20050726
  Transmission Date: 20060218
  Serious: Yes (Other)
  Sender: FDA-Public Use
  Company Number: None

PATIENT
  Age: 28 Year
  Sex: Female
  Weight: 65.318 kg

DRUGS (6)
  1. CYMBALTA [Suspect]
     Indication: DEPRESSION
     Dosage: 60 MG   ONCE DAILY  ORAL
     Route: 048
     Dates: start: 20050330, end: 20050630
  2. FLAGYL [Concomitant]
  3. SEPTRA DS [Concomitant]
  4. LUTALYSE [Concomitant]
  5. XANAX [Concomitant]
  6. PLAN B [Concomitant]

REACTIONS (7)
  - ACCIDENTAL NEEDLE STICK [None]
  - BALANCE DISORDER [None]
  - CLOSED HEAD INJURY [None]
  - CLUMSINESS [None]
  - DIZZINESS [None]
  - FALL [None]
  - LACERATION [None]
